FAERS Safety Report 12227309 (Version 2)
Quarter: 2016Q2

REPORT INFORMATION
  Report Type: Spontaneous
  Country: JP (occurrence: JP)
  Receive Date: 20160331
  Receipt Date: 20160411
  Transmission Date: 20160815
  Serious: Yes (Other)
  Sender: FDA-Public Use
  Company Number: PHHY2016JP041371

PATIENT
  Age: 78 Year
  Sex: Male

DRUGS (1)
  1. DOCETAXEL. [Suspect]
     Active Substance: DOCETAXEL
     Indication: GASTRIC CANCER
     Dosage: 40 MG/M2, QW3
     Route: 065

REACTIONS (4)
  - Anaemia [Unknown]
  - Stomatitis [Unknown]
  - Neuropathy peripheral [Unknown]
  - Tumour haemorrhage [Unknown]
